FAERS Safety Report 21905663 (Version 1)
Quarter: 2023Q1

REPORT INFORMATION
  Report Type: Spontaneous
  Country: US (occurrence: None)
  Receive Date: 20230124
  Receipt Date: 20230124
  Transmission Date: 20230417
  Serious: Yes (Death)
  Sender: FDA-Public Use
  Company Number: None

PATIENT
  Sex: Male

DRUGS (6)
  1. ABIRATERONE [Suspect]
     Active Substance: ABIRATERONE
     Indication: Prostate cancer
     Dosage: FREQUENCY : DAILY;?
     Route: 048
     Dates: start: 20210427, end: 20230112
  2. ABIRATERONE [Suspect]
     Active Substance: ABIRATERONE
     Indication: Pancreatic carcinoma
  3. FENTANYL TRANSDERMAL SYSTEM [Concomitant]
     Active Substance: FENTANYL
  4. TYLENOL [Concomitant]
     Active Substance: ACETAMINOPHEN
  5. PREDNISONE [Concomitant]
     Active Substance: PREDNISONE
  6. XARELTO [Concomitant]
     Active Substance: RIVAROXABAN

REACTIONS (1)
  - Hospice care [None]
